FAERS Safety Report 9880003 (Version 2)
Quarter: 2014Q1

REPORT INFORMATION
  Report Type: Report from Study
  Country: DE (occurrence: DE)
  Receive Date: 20140207
  Receipt Date: 20140207
  Transmission Date: 20141002
  Serious: Yes (Hospitalization)
  Sender: FDA-Public Use
  Company Number: DE-ROCHE-1337434

PATIENT
  Age: 57 Year
  Sex: Female
  Weight: 62 kg

DRUGS (3)
  1. PEG-INTERFERON ALFA 2A [Suspect]
     Indication: HEPATITIS D
     Route: 065
     Dates: end: 20120126
  2. BLINDED TENOFOVIR [Suspect]
     Indication: HEPATITIS D
     Route: 065
     Dates: end: 20120126
  3. ASS [Concomitant]
     Route: 065
     Dates: start: 1997

REACTIONS (1)
  - Gastritis [Recovered/Resolved]
